FAERS Safety Report 8034042-4 (Version None)
Quarter: 2011Q4

REPORT INFORMATION
  Report Type: 
  Country: None (occurrence: None)
  Receive Date: 20111227
  Receipt Date: 20111219
  Transmission Date: 20120403
  Serious: Yes (Other)
  Sender: FDA-Public Use
  Company Number: US-1189116

PATIENT
  Sex: Female
  Weight: 151.955 kg

DRUGS (9)
  1. PREDNISOLONE ACETATE [Suspect]
     Indication: CATARACT OPERATION
     Dosage: (OPHTHALMIC)
  2. VIGAMOX [Suspect]
     Indication: CATARACT OPERATION
     Dosage: (OPHTHALMIC)
     Route: 047
  3. TETRACAINE POLYGYL STERILE OPHTHALMIC SOLUTION [Suspect]
     Dosage: (OPHTHALMIC)
     Route: 047
     Dates: start: 20111114, end: 20111114
  4. NEVENAC 0.1% OPHTHALMIC SUSPENSION [Suspect]
     Indication: CATARACT OPERATION
     Dosage: (OPHTHALMIC)
  5. BSS [Suspect]
  6. BSS [Suspect]
     Indication: CATARACT OPERATION
     Dosage: (INTRAOCULAR) (INTRAOCULAR)
     Route: 031
     Dates: start: 20111114, end: 20111114
  7. BSS [Suspect]
     Indication: CATARACT OPERATION
     Dosage: (INTRAOCULAR) (INTRAOCULAR)
     Route: 031
     Dates: start: 20111114, end: 20111114
  8. DEXAMETHASONE SODIUM PHOSPHATE [Suspect]
     Indication: CATARACT OPERATION
     Dosage: (INTRAOCULAR)
     Route: 031
     Dates: start: 20111114, end: 20111114
  9. BETADINE [Concomitant]

REACTIONS (1)
  - TOXIC ANTERIOR SEGMENT SYNDROME [None]
